FAERS Safety Report 8858592 (Version 2)
Quarter: 2013Q2

REPORT INFORMATION
  Report Type: Spontaneous
  Country: US (occurrence: US)
  Receive Date: 20121024
  Receipt Date: 20130502
  Transmission Date: 20140414
  Serious: No
  Sender: FDA-Public Use
  Company Number: US-009507513-1210USA009294

PATIENT
  Sex: 0

DRUGS (2)
  1. ZOCOR [Suspect]
     Route: 048
  2. ZOCOR [Suspect]
     Dosage: UNK, QOD
     Route: 048

REACTIONS (4)
  - Frequent bowel movements [Unknown]
  - Abdominal discomfort [Unknown]
  - Myalgia [Unknown]
  - Inappropriate schedule of drug administration [Unknown]
